FAERS Safety Report 9819621 (Version 2)
Quarter: 2014Q1

REPORT INFORMATION
  Report Type: Spontaneous
  Country: US (occurrence: US)
  Receive Date: 20140115
  Receipt Date: 20140211
  Transmission Date: 20141002
  Serious: No
  Sender: FDA-Public Use
  Company Number: US-009507513-1401USA000716

PATIENT
  Age: 60 Year
  Sex: Female

DRUGS (3)
  1. DULERA [Suspect]
     Indication: ASTHMA
     Dosage: 2 PUFFS BID
     Route: 055
     Dates: start: 2011
  2. DULERA [Suspect]
     Dosage: UNK
     Route: 055
  3. ATROVENT [Concomitant]

REACTIONS (5)
  - Dyspnoea [Recovering/Resolving]
  - Nasopharyngitis [Unknown]
  - Product quality issue [Unknown]
  - Incorrect dose administered [Unknown]
  - Product quality issue [Unknown]
